FAERS Safety Report 6927901-4 (Version None)
Quarter: 2010Q3

REPORT INFORMATION
  Report Type: 
  Country: None (occurrence: None)
  Receive Date: 20100817
  Receipt Date: 20100806
  Transmission Date: 20110219
  Serious: Yes (Other)
  Sender: FDA-Public Use
  Company Number: US-JNJFOC-20100603620

PATIENT
  Sex: Male
  Weight: 77.11 kg

DRUGS (5)
  1. REMICADE [Suspect]
     Indication: FISTULA
     Dosage: 3 YEARS
     Route: 042
  2. REMICADE [Suspect]
     Indication: CROHN'S DISEASE
     Dosage: 3 YEARS
     Route: 042
  3. IMURAN [Concomitant]
     Indication: CROHN'S DISEASE
  4. FLAGYL [Concomitant]
  5. INSULIN [Concomitant]
     Indication: DIABETES MELLITUS

REACTIONS (3)
  - ABASIA [None]
  - DRUG INEFFECTIVE [None]
  - SKIN DISCOLOURATION [None]
